FAERS Safety Report 21463252 (Version 1)
Quarter: 2022Q4

REPORT INFORMATION
  Report Type: Report from Study
  Country: CN (occurrence: CN)
  Receive Date: 20221017
  Receipt Date: 20221017
  Transmission Date: 20230112
  Serious: Yes (Life-Threatening)
  Sender: FDA-Public Use
  Company Number: CN-JNJFOC-20210650784

PATIENT
  Age: 68 Year
  Sex: Female
  Weight: 52 kg

DRUGS (7)
  1. AMIVANTAMAB [Suspect]
     Active Substance: AMIVANTAMAB
     Indication: Lung adenocarcinoma
     Dosage: MEDICATION KIT NUMBER: 206300, 206301, 206302
     Dates: start: 20210622
  2. NIFEDIPINE [Concomitant]
     Active Substance: NIFEDIPINE
     Indication: Hypertension
     Route: 048
     Dates: start: 20210412
  3. NIFEDIPINE [Concomitant]
     Active Substance: NIFEDIPINE
     Route: 048
     Dates: start: 20210622, end: 20210622
  4. AMOXICILLIN [Concomitant]
     Active Substance: AMOXICILLIN
     Indication: Humerus fracture
     Route: 048
     Dates: start: 20210521
  5. IBUPROFEN [Concomitant]
     Active Substance: IBUPROFEN
     Indication: Humerus fracture
     Route: 048
     Dates: start: 20210521
  6. VITAMIN B1 [Concomitant]
     Active Substance: THIAMINE HYDROCHLORIDE
     Indication: Vitamin supplementation
     Route: 048
     Dates: start: 20210521
  7. VITAMIN B2 [Concomitant]
     Active Substance: RIBOFLAVIN
     Indication: Vitamin supplementation
     Route: 048
     Dates: start: 20210521

REACTIONS (2)
  - Hypertension [Recovered/Resolved]
  - Infusion related reaction [Recovered/Resolved]

NARRATIVE: CASE EVENT DATE: 20210622
